FAERS Safety Report 23269355 (Version 4)
Quarter: 2024Q1

REPORT INFORMATION
  Report Type: Report from Study
  Country: DE (occurrence: DE)
  Receive Date: 20231207
  Receipt Date: 20240318
  Transmission Date: 20240409
  Serious: Yes (Other)
  Sender: FDA-Public Use
  Company Number: DE-CELLTRION INC.-2023DE018249

PATIENT

DRUGS (33)
  1. KANJINTI [Suspect]
     Active Substance: TRASTUZUMAB-ANNS
     Indication: Breast cancer
     Dosage: 399 MG; ON 19/OCT/2023, SHE RECEIVED LAST DOSE PRIOR TO EVENT: 315 MG; ON 09/NOV/2023, SHE RECEIVED
     Route: 065
     Dates: start: 20230817
  2. KANJINTI [Suspect]
     Active Substance: TRASTUZUMAB-ANNS
     Dosage: 315 MG; ON 28/SEP/2023, SHE RECEIVED MOST RECENT DOSE OF TRASTUZMAB 315 MG
     Route: 065
     Dates: start: 20230928
  3. TRASTUZUMAB [Suspect]
     Active Substance: TRASTUZUMAB
     Indication: Breast cancer
     Dosage: 399 MG (ON 19/OCT/2023, SHE RECEIVED LAST DOSE PRIOR TO EVENT: 315 MG ON 09/NOV/2023, SHE RECEIVED L
     Route: 065
     Dates: start: 20230817
  4. TRASTUZUMAB [Suspect]
     Active Substance: TRASTUZUMAB
     Dosage: 315 MG (ON 28/SEP/2023, SHE RECEIVED MOST RECENT DOSE OF TRASTUZMAB 315 MG)
     Route: 065
     Dates: start: 20230928
  5. CARBOPLATIN [Suspect]
     Active Substance: CARBOPLATIN
     Indication: Breast cancer
     Dosage: ON 28/SEP/2023, SHE RECEIVED MOST RECENT DOSE OF CARBOPLATIN 640 MG ON 19/OCT/2023, SHE RECEIVED DOS
     Route: 065
     Dates: start: 20230817, end: 20230817
  6. CARBOPLATIN [Suspect]
     Active Substance: CARBOPLATIN
     Dosage: 690 MG
     Route: 065
     Dates: start: 20230907
  7. CARBOPLATIN [Suspect]
     Active Substance: CARBOPLATIN
     Dosage: 638 MG
     Route: 065
     Dates: start: 20230817
  8. PERJETA [Suspect]
     Active Substance: PERTUZUMAB
     Indication: Breast cancer
     Dosage: 840 MG (20/AUG/2023: LAST DOSE PRIOR TO EVENT :840MG)
     Route: 065
     Dates: start: 20230817
  9. PERJETA [Suspect]
     Active Substance: PERTUZUMAB
     Dosage: 420 MG
     Route: 065
     Dates: start: 20230928
  10. PERJETA [Suspect]
     Active Substance: PERTUZUMAB
     Dosage: 420 MG (ON 19/OCT/2023 AND 09/NOV/2023, SHE RECEIVED LAST DOSE PRIOR EVENT: 420 MG)
     Route: 065
     Dates: start: 20230907
  11. DOCETAXEL [Suspect]
     Active Substance: DOCETAXEL\DOCETAXEL ANHYDROUS
     Indication: Breast cancer
     Dosage: 118 MG (ON 07/SEP/2023, SHE RECEIVED MOST RECENT DOSE OF DOCETAXELON 19/OCT/2023, SHE RECEIVED LAST
     Route: 065
     Dates: start: 20230928
  12. DOCETAXEL [Suspect]
     Active Substance: DOCETAXEL\DOCETAXEL ANHYDROUS
     Dosage: 118 MG (17/AUG/2023 AND 09/NOV/2023: LAST DOSE PRIOR EVENT: 116 MG)
     Route: 065
     Dates: start: 20230817
  13. NEULASTA [Concomitant]
     Active Substance: PEGFILGRASTIM
     Dosage: 6 MG
     Dates: start: 20230818, end: 20230929
  14. NEULASTA [Concomitant]
     Active Substance: PEGFILGRASTIM
     Dosage: 6 MG
     Dates: start: 20231110, end: 20231201
  15. AKYNZEO (NETUPITANT\PALONOSETRON) [Concomitant]
     Active Substance: NETUPITANT\PALONOSETRON
     Dosage: 300 MG
     Dates: start: 20230817, end: 20231130
  16. ENOXAPARIN SODIUM [Concomitant]
     Active Substance: ENOXAPARIN SODIUM
     Dosage: UNK, QD 400IE
     Dates: start: 20230817, end: 20230826
  17. LOPERAMIDE [Concomitant]
     Active Substance: LOPERAMIDE
     Dosage: 2 MG
     Dates: start: 20230821, end: 20230827
  18. LOPERAMIDE [Concomitant]
     Active Substance: LOPERAMIDE
     Dosage: 4 MG
     Dates: start: 20231001
  19. LOPERAMIDE [Concomitant]
     Active Substance: LOPERAMIDE
     Dosage: 4 MG
     Dates: start: 20230910, end: 20230929
  20. DIMETHINDENE MALEATE [Concomitant]
     Active Substance: DIMETHINDENE MALEATE
     Dosage: 4 MG
     Dates: start: 20230817, end: 20231130
  21. DEXAMETHASONE [Concomitant]
     Active Substance: DEXAMETHASONE
     Dosage: 8 MG
     Dates: start: 20230817, end: 20231130
  22. DEXAMETHASONE [Concomitant]
     Active Substance: DEXAMETHASONE
     Dosage: 8 MG
     Dates: start: 20230817, end: 20231130
  23. DEXAMETHASONE [Concomitant]
     Active Substance: DEXAMETHASONE
     Dosage: UNK
     Dates: start: 20230818, end: 20231201
  24. DEXAMETHASONE [Concomitant]
     Active Substance: DEXAMETHASONE
     Dosage: 8 MG
     Dates: start: 20230819, end: 20231202
  25. DEXAMETHASONE [Concomitant]
     Active Substance: DEXAMETHASONE
     Dosage: 16 MG
     Dates: start: 20230906, end: 20231129
  26. VITAMIN D3 [Concomitant]
     Active Substance: CHOLECALCIFEROL
     Dosage: DOSE: 3000 30000 IE, EVERY 1 WEEK
     Dates: start: 20230908
  27. HYSAN [XYLOMETAZOLINE HYDROCHLORIDE] [Concomitant]
     Dosage: DOSE: 1 HUB, EVERY 0.33 DAY
     Dates: start: 20230908
  28. DEXPANTHENOL [Concomitant]
     Active Substance: DEXPANTHENOL
     Dosage: DOSE: 1 CM, EVERY 1 DAY
     Dates: start: 20230908
  29. MCP [Concomitant]
     Active Substance: METOCLOPRAMIDE HYDROCHLORIDE
     Dosage: 10 MG, 1 EVERY DAY
     Dates: start: 20231007, end: 20231007
  30. MCP [Concomitant]
     Active Substance: METOCLOPRAMIDE HYDROCHLORIDE
     Dosage: 10 MG
     Dates: start: 20231116, end: 20231122
  31. ALLIUM CEPA [Concomitant]
     Active Substance: ONION
     Dosage: DOSE: 5 GLOBULES, EVERY 0.33 DAY
     Dates: start: 20230908
  32. NYVEPRIA [Concomitant]
     Active Substance: PEGFILGRASTIM-APGF
     Dosage: 6 MG
     Dates: start: 20231020, end: 20231120
  33. HAMETUM [HAMAMELIS VIRGINIANA] [Concomitant]
     Dosage: 0.5 CM
     Dates: start: 20231020

REACTIONS (20)
  - Polyneuropathy [Recovered/Resolved]
  - Nail discolouration [Not Recovered/Not Resolved]
  - Anal haemorrhage [Not Recovered/Not Resolved]
  - Flushing [Recovered/Resolved]
  - Alopecia [Not Recovered/Not Resolved]
  - Asthenia [Recovered/Resolved]
  - Decreased appetite [Not Recovered/Not Resolved]
  - Diarrhoea [Recovered/Resolved]
  - Dry skin [Not Recovered/Not Resolved]
  - Dysgeusia [Not Recovered/Not Resolved]
  - Dyspepsia [Recovered/Resolved]
  - Epistaxis [Recovered/Resolved]
  - Oedema peripheral [Recovered/Resolved]
  - Nausea [Recovered/Resolved]
  - Rash [Recovered/Resolved]
  - Vomiting [Recovered/Resolved]
  - Nail disorder [Not Recovered/Not Resolved]
  - Illness [Recovered/Resolved]
  - Pain in extremity [Not Recovered/Not Resolved]
  - Intentional product use issue [Unknown]

NARRATIVE: CASE EVENT DATE: 20230818
